FAERS Safety Report 10628812 (Version 2)
Quarter: 2014Q4

REPORT INFORMATION
  Report Type: Spontaneous
  Country: US (occurrence: US)
  Receive Date: 20141205
  Receipt Date: 20141205
  Transmission Date: 20150529
  Serious: No
  Sender: FDA-Public Use
  Company Number: US-BRISTOL-MYERS SQUIBB COMPANY-21279633

PATIENT
  Age: 55 Year
  Sex: Female

DRUGS (1)
  1. ONGLYZA [Suspect]
     Active Substance: SAXAGLIPTIN HYDROCHLORIDE
     Indication: TYPE 2 DIABETES MELLITUS
     Dates: start: 20140716, end: 20140724

REACTIONS (5)
  - Blood glucose increased [Unknown]
  - Constipation [Unknown]
  - Pain [Unknown]
  - Abdominal pain upper [Unknown]
  - Diarrhoea [Unknown]
